FAERS Safety Report 8409476 (Version 2)
Quarter: 2013Q2

REPORT INFORMATION
  Report Type: Spontaneous
  Country: US (occurrence: None)
  Receive Date: 20111227
  Receipt Date: 20120426
  Transmission Date: 20140414
  Serious: Yes (Other)
  Sender: FDA-Public Use
  Company Number: PHEH2011US06314

PATIENT
  Age: 66 Year
  Sex: Female
  Weight: 53.5 kg

DRUGS (10)
  1. GILENYA [Suspect]
     Indication: MULTIPLE SCLEROSIS
     Dosage: 0.5 MG, QD, ORAL
     Route: 048
     Dates: start: 20111003, end: 20111219
  2. DIAZEPAM (DIAZEPAM) [Concomitant]
  3. FISH OIL (FISH OIL) [Concomitant]
  4. LIPITOR (ATORVASTATIN CALCIUM) [Concomitant]
  5. FLUOXETINE (FLUOXETINE) [Concomitant]
  6. HYDROCODONE W/ACETAMINOPHEN (HYDROCODONE BITARTRATE, PARACETAMOL) [Concomitant]
  7. ASPIRIN (ACETYLSALICYLIC ACID) [Concomitant]
  8. CALCIUM CARBONATE W/VITAMIN D NOS (CALCIUM CARBONATE, VITAMIN D NOS) [Concomitant]
  9. VITAMIN D3 (COLECALCIFEROL) [Concomitant]
  10. LEVOTHYROXINE (LEVOTHYROXINE) [Concomitant]

REACTIONS (28)
  - FEELING HOT [None]
  - FALL [None]
  - LACERATION [None]
  - Pharyngeal oedema [None]
  - Muscle spasms [None]
  - Musculoskeletal stiffness [None]
  - Foot deformity [None]
  - Constipation [None]
  - Arthralgia [None]
  - Lymphadenopathy [None]
  - Pain in extremity [None]
  - Fatigue [None]
  - Gait disturbance [None]
  - Breast tenderness [None]
  - Muscle spasticity [None]
  - Neutrophil count increased [None]
  - Blepharitis [None]
  - Lymphocyte count decreased [None]
  - Infection [None]
  - Nasopharyngitis [None]
  - Back pain [None]
  - Ear pain [None]
  - Headache [None]
  - Eyelid ptosis [None]
  - Lacrimation increased [None]
  - Ocular hyperaemia [None]
  - Cough [None]
  - Oropharyngeal pain [None]
